FAERS Safety Report 19869399 (Version 2)
Quarter: 2021Q4

REPORT INFORMATION
  Report Type: Spontaneous
  Country: JP (occurrence: JP)
  Receive Date: 20210922
  Receipt Date: 20211012
  Transmission Date: 20220304
  Serious: Yes (Other)
  Sender: FDA-Public Use
  Company Number: JP-BAYER-2021-212736

PATIENT

DRUGS (4)
  1. EYLEA [Suspect]
     Active Substance: AFLIBERCEPT
     Indication: Diabetic retinal oedema
     Dosage: 2MG. ONCE. RIGHT EYE
     Route: 031
     Dates: start: 20170606, end: 20170606
  2. EYLEA [Suspect]
     Active Substance: AFLIBERCEPT
     Dosage: 2MG. ONCE. LEFT EYE
     Route: 031
     Dates: start: 20170613, end: 20170613
  3. EYLEA [Suspect]
     Active Substance: AFLIBERCEPT
     Dosage: ONCE. RIGHT EYE
     Route: 031
     Dates: start: 20171003, end: 20171003
  4. EYLEA [Suspect]
     Active Substance: AFLIBERCEPT
     Dosage: ONCE. LEFT EYE
     Route: 031
     Dates: start: 20171010, end: 20171010

REACTIONS (2)
  - Cerebral haemorrhage [Recovered/Resolved]
  - Hypertension [Recovered/Resolved]
